FAERS Safety Report 8128071-X (Version None)
Quarter: 2012Q1

REPORT INFORMATION
  Report Type: 
  Country: None (occurrence: None)
  Receive Date: 20120210
  Receipt Date: 20120206
  Transmission Date: 20120608
  Serious: Yes (Other)
  Sender: FDA-Public Use
  Company Number: JP-PFIZER INC-2012003809

PATIENT
  Age: 81 Year
  Sex: Female

DRUGS (2)
  1. VESICARE [Concomitant]
     Dosage: UNK
     Route: 048
  2. TOLTERODINE TARTRATE [Suspect]
     Dosage: UNK
     Route: 048

REACTIONS (1)
  - TREMOR [None]
